FAERS Safety Report 5085524-9 (Version None)
Quarter: 2006Q3

REPORT INFORMATION
  Report Type: 
  Country: None (occurrence: None)
  Receive Date: 20060816
  Receipt Date: 20060731
  Transmission Date: 20061208
  Serious: Yes (Hospitalization, Other)
  Sender: FDA-Public Use
  Company Number: 2006AL002282

PATIENT

DRUGS (1)
  1. METFORMIN HYDROCHLORIDE TABLETS, 1000 MG (PUREPAC)  (METFORMIN HYDROCH [Suspect]
     Dosage: PO
     Route: 048

REACTIONS (6)
  - HAEMODIALYSIS [None]
  - HYPERTENSION [None]
  - HYPOTENSION [None]
  - LACTIC ACIDOSIS [None]
  - MYOCARDIAL ISCHAEMIA [None]
  - RENAL FAILURE ACUTE [None]
